FAERS Safety Report 8929188 (Version 1)
Quarter: 2012Q4

REPORT INFORMATION
  Report Type: Spontaneous
  Country: US (occurrence: None)
  Receive Date: 20121126
  Receipt Date: 20121126
  Transmission Date: 20130627
  Serious: Yes (Other)
  Sender: FDA-Public Use
  Company Number: None

PATIENT
  Age: 88 Year
  Sex: Female
  Weight: 40.82 kg

DRUGS (1)
  1. ALENDRONATE 70 MG (GENERIC FOR FOSOMAX 70 MG) [Suspect]
     Indication: OSTEOPOROSIS
     Dosage: 1 weekly by mouth
     Route: 048
     Dates: start: 20120728, end: 20120818

REACTIONS (5)
  - Lip swelling [None]
  - Gingival pain [None]
  - Hypoaesthesia oral [None]
  - Ageusia [None]
  - Cheilitis [None]
